FAERS Safety Report 8107710-3 (Version None)
Quarter: 2012Q1

REPORT INFORMATION
  Report Type: 
  Country: None (occurrence: None)
  Receive Date: 20120202
  Receipt Date: 20120123
  Transmission Date: 20120608
  Serious: Yes (Other)
  Sender: FDA-Public Use
  Company Number: BR-JNJFOC-20120110872

PATIENT
  Age: 1 Week
  Sex: Female

DRUGS (1)
  1. MYLICON [Suspect]
     Indication: FLATULENCE
     Route: 048
     Dates: start: 20120120, end: 20120120

REACTIONS (2)
  - ERYTHEMA [None]
  - TREMOR [None]
